FAERS Safety Report 5268737-2 (Version None)
Quarter: 2007Q1

REPORT INFORMATION
  Report Type: 
  Country: None (occurrence: None)
  Receive Date: 20070313
  Receipt Date: 20070226
  Transmission Date: 20070707
  Serious: Yes (Hospitalization)
  Sender: FDA-Public Use
  Company Number: S07-NOR-01049-01

PATIENT
  Age: 84 Year
  Sex: Female

DRUGS (5)
  1. ESCITALOPRAM [Suspect]
  2. LEKOVIT CA [Concomitant]
  3. METOPROLOL SUCCINATE [Concomitant]
  4. COZAAR [Concomitant]
  5. VITAMIN B12 DEPOT (HYDROXYCOBALAMIN) [Concomitant]

REACTIONS (3)
  - BLOOD SODIUM DECREASED [None]
  - HAEMOGLOBIN DECREASED [None]
  - HYPONATRAEMIA [None]
